FAERS Safety Report 6326491-7 (Version None)
Quarter: 2009Q3

REPORT INFORMATION
  Report Type: 
  Country: None (occurrence: None)
  Receive Date: 20090821
  Receipt Date: 20090810
  Transmission Date: 20100115
  Serious: Yes (Life-Threatening, Hospitalization)
  Sender: FDA-Public Use
  Company Number: ADR11782009

PATIENT
  Age: 57 Year
  Sex: Female

DRUGS (7)
  1. RAMIPRIL [Suspect]
     Dosage: 10 MG QD ORAL
     Route: 048
     Dates: end: 20060513
  2. METFORMIN 1000 MG (MFR: UNKNOWN) [Suspect]
     Indication: TYPE 2 DIABETES MELLITUS
     Dosage: 1000 MG TID ORAL
     Route: 048
     Dates: end: 20090513
  3. ASPIRIN [Concomitant]
  4. ATENOLOL [Concomitant]
  5. FUROSEMIDE 80 MG [Concomitant]
  6. MOXONIDINE 300 ?G [Concomitant]
  7. LOSARTAN POTASSIUM [Concomitant]

REACTIONS (7)
  - BASE EXCESS NEGATIVE [None]
  - BLOOD GASES ABNORMAL [None]
  - DEHYDRATION [None]
  - DIALYSIS [None]
  - LACTIC ACIDOSIS [None]
  - RENAL FAILURE [None]
  - VOMITING [None]
